FAERS Safety Report 26121002 (Version 1)
Quarter: 2025Q4

REPORT INFORMATION
  Report Type: Spontaneous
  Country: US (occurrence: None)
  Receive Date: 20251203
  Receipt Date: 20251203
  Transmission Date: 20260118
  Serious: Yes (Death)
  Sender: FDA-CTU
  Company Number: None

PATIENT
  Sex: Female

DRUGS (5)
  1. LENALIDOMIDE [Suspect]
     Active Substance: LENALIDOMIDE
     Indication: Plasma cell myeloma
     Dosage: OTHER FREQUENCY : DAILY FOR 21 DAYS OF 28 DAYS ;?
     Route: 048
     Dates: start: 20250502
  2. DEXAMETHASON TAB 1MG [Concomitant]
  3. ELIQUIS [Concomitant]
     Active Substance: APIXABAN
  4. IBUPROFEN [Concomitant]
     Active Substance: IBUPROFEN
  5. METOPROL sue TAB 100MG ER [Concomitant]

REACTIONS (1)
  - Death [None]
